FAERS Safety Report 4374310-0 (Version None)
Quarter: 2004Q2

REPORT INFORMATION
  Report Type: 
  Country: None (occurrence: None)
  Receive Date: 20040604
  Receipt Date: 20040518
  Transmission Date: 20050107
  Serious: Yes (Other)
  Sender: FDA-Public Use
  Company Number: 200403800

PATIENT
  Age: 37 Year
  Sex: Male

DRUGS (2)
  1. MOTRIN IB [Suspect]
     Indication: BACK PAIN
     Dosage: 400 MG, ONCE, PO
     Route: 048
     Dates: start: 20040517, end: 20040517
  2. MOTRIN IB [Suspect]
     Indication: HEADACHE
     Dosage: 400 MG, ONCE, PO
     Route: 048
     Dates: start: 20040517, end: 20040517

REACTIONS (12)
  - ABDOMINAL PAIN UPPER [None]
  - CHILLS [None]
  - EYE DISORDER [None]
  - FEELING COLD [None]
  - FOOD POISONING [None]
  - HYPERHIDROSIS [None]
  - HYPOVENTILATION [None]
  - LOSS OF CONSCIOUSNESS [None]
  - NAUSEA [None]
  - PULSE PRESSURE DECREASED [None]
  - VASODILATATION [None]
  - VOMITING [None]
